FAERS Safety Report 20837487 (Version 3)
Quarter: 2022Q3

REPORT INFORMATION
  Report Type: Report from Study
  Country: CA (occurrence: CA)
  Receive Date: 20220517
  Receipt Date: 20220726
  Transmission Date: 20221026
  Serious: Yes (Hospitalization, Other)
  Sender: FDA-Public Use
  Company Number: CA-CELLTRION INC.-2022CA006731

PATIENT

DRUGS (8)
  1. TRUXIMA [Suspect]
     Active Substance: RITUXIMAB-ABBS
     Indication: Rheumatoid arthritis
     Dosage: 1000 MG
     Route: 042
     Dates: start: 20211012
  2. CALCIUM [Concomitant]
     Active Substance: CALCIUM
     Dosage: 500 MG
  3. FOLIC ACID [Concomitant]
     Active Substance: FOLIC ACID
     Dosage: 5 MG
  4. ASPIRIN [Concomitant]
     Active Substance: ASPIRIN
     Dosage: 81 MG
  5. PREDNISONE [Concomitant]
     Active Substance: PREDNISONE
     Dosage: 5 MG
  6. EMOLAX [MACROGOL 3350] [Concomitant]
     Dosage: UNK, PRN
  7. MORPHINE [Concomitant]
     Active Substance: MORPHINE
     Indication: Condition aggravated
  8. ANAPROX [Concomitant]
     Active Substance: NAPROXEN SODIUM

REACTIONS (4)
  - Hip fracture [Not Recovered/Not Resolved]
  - Joint dislocation [Unknown]
  - Surgery [Unknown]
  - Treatment delayed [Unknown]
